FAERS Safety Report 16115176 (Version 1)
Quarter: 2019Q1

REPORT INFORMATION
  Report Type: Spontaneous
  Country: US (occurrence: US)
  Receive Date: 20190325
  Receipt Date: 20190325
  Transmission Date: 20190418
  Serious: Yes (Hospitalization)
  Sender: FDA-Public Use
  Company Number: US-GLAXOSMITHKLINE-US2019050312

PATIENT
  Age: 40 Year
  Sex: Female

DRUGS (1)
  1. WELLBUTRIN [Suspect]
     Active Substance: BUPROPION HYDROCHLORIDE
     Indication: PRODUCT USED FOR UNKNOWN INDICATION
     Dosage: UNK UNK, U

REACTIONS (6)
  - Insomnia [Unknown]
  - Attention deficit/hyperactivity disorder [Unknown]
  - Paranoia [Unknown]
  - Mania [Unknown]
  - Dissociation [Unknown]
  - Fear [Unknown]

NARRATIVE: CASE EVENT DATE: 20190319
